FAERS Safety Report 12987471 (Version 1)
Quarter: 2016Q4

REPORT INFORMATION
  Report Type: Spontaneous
  Country: GB (occurrence: GB)
  Receive Date: 20161130
  Receipt Date: 20161130
  Transmission Date: 20170207
  Serious: Yes (Life-Threatening, Hospitalization, Other)
  Sender: FDA-Public Use
  Company Number: GB-TEVA-714719ACC

PATIENT
  Age: 81 Year
  Sex: Male

DRUGS (4)
  1. METFORMIN [Concomitant]
     Active Substance: METFORMIN HYDROCHLORIDE
  2. WARFARIN [Suspect]
     Active Substance: WARFARIN
     Indication: ATRIAL FIBRILLATION
     Dosage: AS PER INR
     Route: 048
     Dates: end: 20160620
  3. OLODATEROL [Concomitant]
     Active Substance: OLODATEROL
  4. SALMETEROL [Concomitant]
     Active Substance: SALMETEROL

REACTIONS (11)
  - Facial paresis [Unknown]
  - Feeling abnormal [Unknown]
  - Thalamus haemorrhage [Recovered/Resolved with Sequelae]
  - Circulatory collapse [Recovered/Resolved]
  - Confusional state [Unknown]
  - Dysarthria [Unknown]
  - Hypertension [Unknown]
  - Hemiplegia [Unknown]
  - Basal ganglia infarction [Recovering/Resolving]
  - Dysphagia [Recovering/Resolving]
  - Intracranial mass [Recovering/Resolving]

NARRATIVE: CASE EVENT DATE: 20160620
